FAERS Safety Report 25390401 (Version 1)
Quarter: 2025Q2

REPORT INFORMATION
  Report Type: Spontaneous
  Country: US (occurrence: None)
  Receive Date: 20250602
  Receipt Date: 20250602
  Transmission Date: 20250716
  Serious: Yes (Other)
  Sender: FDA-CTU
  Company Number: None

PATIENT
  Age: 42 Year
  Sex: Male

DRUGS (7)
  1. ODACTRA [Suspect]
     Active Substance: DERMATOPHAGOIDES FARINAE\DERMATOPHAGOIDES PTERONYSSINUS
     Indication: Hypersensitivity
     Dosage: FREQUENCY : DAILY;?
     Route: 060
     Dates: start: 20250210
  2. EPIPEN [Concomitant]
     Active Substance: EPINEPHRINE
  3. BUDESONIDE [Concomitant]
     Active Substance: BUDESONIDE
  4. PAXLOVID [Concomitant]
     Active Substance: NIRMATRELVIR\RITONAVIR
  5. VALACYCLOVIR [Concomitant]
     Active Substance: VALACYCLOVIR HYDROCHLORIDE
  6. ALBUTEROL [Concomitant]
     Active Substance: ALBUTEROL
  7. PREDNISONE [Concomitant]
     Active Substance: PREDNISONE

REACTIONS (3)
  - Dysphagia [None]
  - Therapy interrupted [None]
  - Eosinophilic oesophagitis [None]

NARRATIVE: CASE EVENT DATE: 20250521
